FAERS Safety Report 18543276 (Version 7)
Quarter: 2021Q3

REPORT INFORMATION
  Report Type: Report from Study
  Country: JP (occurrence: JP)
  Receive Date: 20201124
  Receipt Date: 20210831
  Transmission Date: 20211014
  Serious: Yes (Hospitalization)
  Sender: FDA-Public Use
  Company Number: NVSJ2020JP007956

PATIENT
  Age: 1 Year
  Sex: Female
  Weight: 7.1 kg

DRUGS (7)
  1. SOLITA?T 3G [Concomitant]
     Indication: PRODUCT USED FOR UNKNOWN INDICATION
     Dosage: 8 G
     Route: 065
     Dates: start: 20191121
  2. ZOLGENSMA [Suspect]
     Active Substance: ONASEMNOGENE ABEPARVOVEC-XIOI
     Indication: SPINAL MUSCULAR ATROPHY
     Dosage: 1.1 X10^14 VG/KG
     Route: 041
     Dates: start: 20200811, end: 20200811
  3. PREDNISOLONE. [Concomitant]
     Active Substance: PREDNISOLONE
     Indication: PRODUCT USED FOR UNKNOWN INDICATION
     Dosage: 1 MG/KG
     Route: 048
     Dates: start: 20200810
  4. TAKECAB [Concomitant]
     Active Substance: VONOPRAZAN FUMARATE
     Indication: PRODUCT USED FOR UNKNOWN INDICATION
     Dosage: 5 MG
     Route: 065
     Dates: start: 20191116
  5. PREDNISOLONE. [Concomitant]
     Active Substance: PREDNISOLONE
     Dosage: 0.5 MG/KG/DAY
     Route: 048
     Dates: start: 202009, end: 20201030
  6. MOSAPRIDE CITRATE [Concomitant]
     Active Substance: MOSAPRIDE CITRATE
     Indication: PRODUCT USED FOR UNKNOWN INDICATION
     Dosage: 3 MG
     Route: 065
     Dates: start: 20191116
  7. PREDNISOLONE. [Concomitant]
     Active Substance: PREDNISOLONE
     Dosage: 1 MG/KG
     Route: 048
     Dates: start: 20201031, end: 20201106

REACTIONS (17)
  - Inflammation [Recovered/Resolved]
  - C-reactive protein increased [Recovered/Resolved]
  - Aspartate aminotransferase increased [Not Recovered/Not Resolved]
  - Concomitant disease progression [Recovered/Resolved]
  - Blood lactate dehydrogenase increased [Recovering/Resolving]
  - Hepatic function abnormal [Not Recovered/Not Resolved]
  - Pyrexia [Recovered/Resolved]
  - Serum ferritin increased [Recovering/Resolving]
  - Platelet count decreased [Recovered/Resolved]
  - Pneumonia aspiration [Recovered/Resolved]
  - Pyrexia [Recovered/Resolved]
  - Bronchitis [Recovered/Resolved]
  - Vomiting [Recovered/Resolved]
  - Alanine aminotransferase increased [Not Recovered/Not Resolved]
  - Aspartate aminotransferase increased [Recovered/Resolved]
  - Alanine aminotransferase increased [Recovered/Resolved]
  - Nausea [Unknown]

NARRATIVE: CASE EVENT DATE: 20200813
